FAERS Safety Report 6326953-2 (Version None)
Quarter: 2009Q3

REPORT INFORMATION
  Report Type: 
  Country: None (occurrence: None)
  Receive Date: 20090825
  Receipt Date: 20090813
  Transmission Date: 20100115
  Serious: Yes (Hospitalization)
  Sender: FDA-Public Use
  Company Number: PHHY2009MX34729

PATIENT
  Age: 82 Year
  Sex: Female

DRUGS (3)
  1. ZELMAC [Suspect]
     Indication: IRRITABLE BOWEL SYNDROME
     Dosage: 1 TABLET (6 MG) PER DAY
     Route: 048
     Dates: start: 20090501
  2. PROPRANOLOL [Concomitant]
     Indication: HYPERTENSION
  3. GLIBENCLAMIDE [Concomitant]
     Indication: DIABETES MELLITUS

REACTIONS (2)
  - FALL [None]
  - LOWER LIMB FRACTURE [None]
